FAERS Safety Report 5578722-9 (Version None)
Quarter: 2008Q1

REPORT INFORMATION
  Report Type: 
  Country: None (occurrence: None)
  Receive Date: 20080102
  Receipt Date: 20071226
  Transmission Date: 20080703
  Serious: Yes (Other)
  Sender: FDA-Public Use
  Company Number: US-JNJFOC-20071206060

PATIENT
  Sex: Female

DRUGS (14)
  1. REMICADE [Suspect]
     Indication: RHEUMATOID ARTHRITIS
     Route: 042
  2. BONIVA [Concomitant]
  3. GAS X [Concomitant]
  4. LYRICA [Concomitant]
     Indication: NEUROPATHY PERIPHERAL
  5. MS CONTIN [Concomitant]
     Indication: PAIN
  6. MORPHINE SULFATE [Concomitant]
  7. METHOTREXATE [Concomitant]
     Indication: RHEUMATOID ARTHRITIS
  8. FOLIC ACID [Concomitant]
  9. FLEXERIL [Concomitant]
  10. OMEPRAZOLE [Concomitant]
  11. SYSTANE [Concomitant]
     Indication: DRY EYE
  12. METAMUCIL [Concomitant]
  13. CALCIUM [Concomitant]
  14. LORATADINE [Concomitant]
     Indication: MULTIPLE ALLERGIES

REACTIONS (2)
  - BREAST CANCER [None]
  - RASH [None]
